FAERS Safety Report 8694028 (Version 2)
Quarter: 2018Q2

REPORT INFORMATION
  Report Type: Report from Study
  Country: JP (occurrence: JP)
  Receive Date: 20120731
  Receipt Date: 20180409
  Transmission Date: 20180711
  Serious: Yes (Hospitalization, Other)
  Sender: FDA-Public Use
  Company Number: PHHY2012JP015912

PATIENT
  Age: 64 Year
  Sex: Male

DRUGS (3)
  1. AFINITOR [Suspect]
     Active Substance: EVEROLIMUS
     Indication: METASTATIC RENAL CELL CARCINOMA
     Dosage: 10 MG, QD
     Route: 048
     Dates: start: 20110809, end: 20120110
  2. ALLOPURINOL. [Concomitant]
     Active Substance: ALLOPURINOL
     Indication: METASTATIC RENAL CELL CARCINOMA
     Dosage: 200 MG, UNK
     Route: 048
     Dates: start: 20100112
  3. HACHIAZULE [Concomitant]
     Indication: PROPHYLAXIS
     Dosage: 6 G, UNK
     Route: 048
     Dates: start: 20110906, end: 20120110

REACTIONS (13)
  - Malaise [Recovering/Resolving]
  - C-reactive protein increased [Unknown]
  - Dyspnoea [Unknown]
  - Stomatitis [Recovering/Resolving]
  - Cough [Recovering/Resolving]
  - Malignant neoplasm progression [Unknown]
  - Appetite disorder [Unknown]
  - Interstitial lung disease [Unknown]
  - Pyrexia [Recovering/Resolving]
  - Respiratory disorder [Unknown]
  - Blood lactate dehydrogenase increased [Unknown]
  - Neoplasm progression [Unknown]
  - Fatigue [Unknown]

NARRATIVE: CASE EVENT DATE: 20110823
